FAERS Safety Report 8796299 (Version 2)
Quarter: 2014Q2

REPORT INFORMATION
  Report Type: Spontaneous
  Country: AU (occurrence: AU)
  Receive Date: 20120919
  Receipt Date: 20131017
  Transmission Date: 20141212
  Serious: Yes (Hospitalization, Other)
  Sender: FDA-Public Use
  Company Number: AU-PFIZER INC-2012207635

PATIENT
  Age: 68 Year
  Sex: Male
  Weight: 74 kg

DRUGS (7)
  1. SUTENT [Suspect]
     Indication: RENAL CELL CARCINOMA
     Dosage: 50 MG, 1X/DAY, DAY 1-28
     Route: 048
     Dates: start: 201208, end: 20120820
  2. DILANTIN [Interacting]
     Indication: CONVULSION
     Dosage: 200 MG, 2X/DAY
     Route: 048
     Dates: end: 20120821
  3. BICOR [Concomitant]
     Dosage: 5 MG, 1X/DAY
  4. VALIUM [Concomitant]
     Dosage: 2.5 MG, 2X/DAY AS NEEDED
  5. COVERSYL [Concomitant]
     Dosage: 10 MG, 1X/DAY
  6. CRESTOR [Concomitant]
     Dosage: 20 MG, 1X/DAY
  7. CARTIA [Concomitant]
     Dosage: 100 MG, 1X/DAY

REACTIONS (3)
  - Drug interaction [Recovered/Resolved with Sequelae]
  - Anticonvulsant drug level increased [Recovered/Resolved with Sequelae]
  - Confusional state [Recovered/Resolved with Sequelae]
